FAERS Safety Report 11151109 (Version 1)
Quarter: 2015Q2

REPORT INFORMATION
  Report Type: Spontaneous
  Country: US (occurrence: US)
  Receive Date: 20150601
  Receipt Date: 20150601
  Transmission Date: 20150821
  Serious: Yes (Hospitalization, Other)
  Sender: FDA-Public Use
  Company Number: US-PFIZER INC-2015177560

PATIENT
  Age: 59 Year
  Sex: Male

DRUGS (22)
  1. ASPIRIN. [Concomitant]
     Active Substance: ASPIRIN
     Dosage: 88 MG, 1X/DAY
  2. XALATAN [Concomitant]
     Active Substance: LATANOPROST
     Indication: GLAUCOMA
     Dosage: UNK (ONE DROP PER EYE EACH DAY)
  3. MEDROL [Suspect]
     Active Substance: METHYLPREDNISOLONE
     Indication: BRONCHITIS
     Dosage: UNK
  4. AMBIEN [Concomitant]
     Active Substance: ZOLPIDEM TARTRATE
     Indication: SLEEP DISORDER
     Dosage: 10 MG, UNK (1 AT BEDTIME FOR SLEEP)
  5. DEXILANT [Concomitant]
     Active Substance: DEXLANSOPRAZOLE
     Dosage: 60 MG, UNK (EACH AM)
  6. VITAMIN D3 [Concomitant]
     Active Substance: CHOLECALCIFEROL
     Dosage: 5000 IU, 1X/DAY
  7. FIORICET [Concomitant]
     Active Substance: ACETAMINOPHEN\BUTALBITAL\CAFFEINE
     Indication: HEADACHE
     Dosage: UNK, AS NEEDED (BUTALBITAL 50MG/ APAP 325 MG., CAFFEINE)
  8. LASIX [Concomitant]
     Active Substance: FUROSEMIDE
     Dosage: 20 MG, 1X/DAY (ONE EACH MORNING)
  9. SINGULAIR [Concomitant]
     Active Substance: MONTELUKAST SODIUM
     Dosage: 10 MG, 1X/DAY
  10. CLONAZEPAM. [Concomitant]
     Active Substance: CLONAZEPAM
     Indication: ANXIETY
     Dosage: 0.5 MG, UNK (ONE TABLET AM, 1/2 TABLET AFTERNOON, 1 TABLET EVENING)
  11. HYDROCODONE/ACETAMINOPHEN [Concomitant]
     Active Substance: ACETAMINOPHEN\HYDROCODONE
     Indication: ARTHRALGIA
     Dosage: UNK UNK, AS NEEDED (HYDROCODONE 7 .5 MG:7 .5 MG;ACETAMINOPHEN: 325 MG
  12. WELLBUTRIN XL [Concomitant]
     Active Substance: BUPROPION HYDROCHLORIDE
     Dosage: 300 MG, 1X/DAY
  13. FISH OIL [Concomitant]
     Active Substance: FISH OIL
     Dosage: 1400 MG, 1X/DAY (INCLUDES OMEGA 3 - 980 MG)
  14. FLUTICASONE [Concomitant]
     Active Substance: FLUTICASONE\FLUTICASONE PROPIONATE
     Dosage: UNK, AS NEEDED (EACH NOSTRIL, AT BEDTIME)
  15. POTASSIUM [Concomitant]
     Active Substance: POTASSIUM
     Dosage: 8 ?G, 2X/DAY (1 TABLET TWICE PER DAY)
  16. CRESTOR [Concomitant]
     Active Substance: ROSUVASTATIN CALCIUM
     Dosage: 20 MG, UNK ( BEDTIME)
  17. DULERA [Concomitant]
     Active Substance: FORMOTEROL FUMARATE DIHYDRATE\MOMETASONE FUROATE
     Dosage: UNK, 2X/DAY (MOMETASONE: 200 MCG)
  18. IMURAN [Concomitant]
     Active Substance: AZATHIOPRINE
     Dosage: 100 MG, DAILY (50 MG TWO TABLETS PER DAY IN THE EVENING)
  19. CIALIS [Concomitant]
     Active Substance: TADALAFIL
     Dosage: 5 MG, 1X/DAY
  20. PLAVIX [Concomitant]
     Active Substance: CLOPIDOGREL BISULFATE
     Dosage: 75 MG, 1X/DAY (ONE EACH DAY AT BEDTIME)
  21. BYSTOLIC [Concomitant]
     Active Substance: NEBIVOLOL HYDROCHLORIDE
     Dosage: 5 MG, 1X/DAY (ONE TABLET, ONE PER DAY, IN THE MORNING)
  22. COLAZAL [Concomitant]
     Active Substance: BALSALAZIDE DISODIUM
     Dosage: 750 MG, 2X/DAY

REACTIONS (10)
  - Glaucoma [Unknown]
  - Cervix disorder [Unknown]
  - Colitis ulcerative [Unknown]
  - Cataract [Unknown]
  - Myocardial infarction [Unknown]
  - Pneumonia [Unknown]
  - Sleep apnoea syndrome [Unknown]
  - Arthropathy [Unknown]
  - Basal cell carcinoma [Unknown]
  - Coronary artery disease [Unknown]

NARRATIVE: CASE EVENT DATE: 1995
